FAERS Safety Report 6195619-4 (Version None)
Quarter: 2009Q2

REPORT INFORMATION
  Report Type: 
  Country: None (occurrence: None)
  Receive Date: 20090519
  Receipt Date: 20090512
  Transmission Date: 20091009
  Serious: Yes (Hospitalization)
  Sender: FDA-Public Use
  Company Number: PHHY2009JP18413

PATIENT
  Age: 78 Year
  Sex: Male

DRUGS (4)
  1. DIOVAN HCT [Suspect]
     Indication: HYPERTENSION
     Dosage: UNK
     Route: 048
     Dates: start: 20090415, end: 20090425
  2. DIOVAN [Suspect]
     Dosage: UNK
     Dates: end: 20090415
  3. LASIX [Suspect]
     Dosage: UNK
     Dates: end: 20090415
  4. ADALAT CC [Concomitant]
     Dosage: 1 DF, UNK
     Route: 048

REACTIONS (3)
  - ASTHENIA [None]
  - HYPOKALAEMIA [None]
  - PARALYSIS [None]
